FAERS Safety Report 11149527 (Version 1)
Quarter: 2015Q2

REPORT INFORMATION
  Report Type: Spontaneous
  Country: CA (occurrence: None)
  Receive Date: 20150528
  Receipt Date: 20150528
  Transmission Date: 20150821
  Serious: No
  Sender: FDA-Public Use
  Company Number: None

PATIENT
  Age: 71 Year
  Sex: Female
  Weight: 65.32 kg

DRUGS (7)
  1. CEPHALEXIN. [Suspect]
     Active Substance: CEPHALEXIN
     Indication: URINARY TRACT INFECTION
     Route: 048
     Dates: start: 20150418, end: 20150419
  2. LIPIDOR [Concomitant]
  3. VITAMIN D [Concomitant]
     Active Substance: CHOLECALCIFEROL
  4. CRANBERRY EXRACT [Concomitant]
  5. GLUCOSAMINE CHONDROITINE [Concomitant]
  6. ASA [Concomitant]
     Active Substance: ASPIRIN
  7. CALCIUM CITRATE WITH VIT D3 [Concomitant]

REACTIONS (5)
  - Listless [None]
  - Heart rate increased [None]
  - Fatigue [None]
  - Gastritis [None]
  - Decreased appetite [None]

NARRATIVE: CASE EVENT DATE: 20150418
